FAERS Safety Report 21409426 (Version 3)
Quarter: 2022Q4

REPORT INFORMATION
  Report Type: Spontaneous
  Country: GR (occurrence: GR)
  Receive Date: 20221004
  Receipt Date: 20221130
  Transmission Date: 20230113
  Serious: Yes (Other)
  Sender: FDA-Public Use
  Company Number: GR-AstraZeneca-2022A329932

PATIENT
  Age: 55 Year
  Sex: Female

DRUGS (3)
  1. TRASTUZUMAB DERUXTECAN [Suspect]
     Active Substance: TRASTUZUMAB DERUXTECAN
     Indication: Breast cancer metastatic
     Dosage: 5.4 MG/KG, AS NEEDED
     Route: 042
     Dates: start: 20220303
  2. BRINTELLIX [VORTIOXETINE HYDROBROMIDE] [Concomitant]
     Indication: Antidepressant therapy
     Dosage: 10 MG, QD
     Route: 065
     Dates: start: 202106
  3. MATEVER [Concomitant]
     Indication: Epilepsy
     Dosage: 500 MG, BID
     Route: 065
     Dates: start: 202108

REACTIONS (2)
  - Deafness [Not Recovered/Not Resolved]
  - Exposure during pregnancy [Unknown]

NARRATIVE: CASE EVENT DATE: 20220701
